FAERS Safety Report 13737100 (Version 3)
Quarter: 2017Q3

REPORT INFORMATION
  Report Type: Report from Study
  Country: FR (occurrence: FR)
  Receive Date: 20170710
  Receipt Date: 20170927
  Transmission Date: 20171127
  Serious: Yes (Life-Threatening, Hospitalization)
  Sender: FDA-Public Use
  Company Number: FR-JNJFOC-20170703658

PATIENT
  Age: 81 Year
  Sex: Male
  Weight: 91 kg

DRUGS (12)
  1. CANDESARTAN. [Concomitant]
     Active Substance: CANDESARTAN
     Route: 065
  2. AMIODARONE [Concomitant]
     Active Substance: AMIODARONE
     Indication: ATRIAL FIBRILLATION
     Dosage: 5/7 DAYS
     Route: 065
  3. FLUINDIONE [Concomitant]
     Active Substance: FLUINDIONE
     Indication: ATRIAL FIBRILLATION
     Route: 065
  4. IBRUTINIB [Suspect]
     Active Substance: IBRUTINIB
     Indication: MANTLE CELL LYMPHOMA
     Route: 048
     Dates: start: 20160129
  5. DESLORATADINE. [Concomitant]
     Active Substance: DESLORATADINE
     Dosage: 1 IN THE EVENING
     Route: 065
  6. ZOLPIDEM [Concomitant]
     Active Substance: ZOLPIDEM\ZOLPIDEM TARTRATE
     Dosage: 1 AT BEDTIME
     Route: 065
  7. TOBRAMYCIN. [Concomitant]
     Active Substance: TOBRAMYCIN
     Indication: COUGH
     Route: 055
  8. AMIODARONE [Concomitant]
     Active Substance: AMIODARONE
     Indication: ARRHYTHMIA
     Dosage: 5/7 DAYS
     Route: 065
  9. FLUINDIONE [Concomitant]
     Active Substance: FLUINDIONE
     Indication: ARRHYTHMIA
     Route: 065
  10. DIFFU-K [Concomitant]
     Active Substance: POTASSIUM CHLORIDE
     Dosage: IN THE MORNING
  11. PRAVASTATIN. [Concomitant]
     Active Substance: PRAVASTATIN
     Dosage: 1 IN THE EVENING
     Route: 065
  12. CARBOSYMAG [Concomitant]
     Dosage: DOSE AT 10:00 AM AND 1 AT 4:00 PM
     Route: 065

REACTIONS (1)
  - Acute respiratory failure [Recovered/Resolved with Sequelae]

NARRATIVE: CASE EVENT DATE: 20160418
